FAERS Safety Report 16531552 (Version 2)
Quarter: 2019Q3

REPORT INFORMATION
  Report Type: Spontaneous
  Country: TH (occurrence: TH)
  Receive Date: 20190704
  Receipt Date: 20190709
  Transmission Date: 20191004
  Serious: Yes (Life-Threatening, Hospitalization, Other)
  Sender: FDA-Public Use
  Company Number: TH-ACCORD-136555

PATIENT
  Age: 57 Year
  Sex: Male

DRUGS (5)
  1. TENOFOVIR [Concomitant]
     Active Substance: TENOFOVIR
     Indication: HEPATITIS B
  2. MYCOPHENOLIC ACID. [Suspect]
     Active Substance: MYCOPHENOLIC ACID
     Indication: IMMUNOSUPPRESSANT DRUG THERAPY
     Dosage: GIVEN FROM POD4
     Dates: start: 201707
  3. BASILIXIMAB [Suspect]
     Active Substance: BASILIXIMAB
     Indication: IMMUNOSUPPRESSANT DRUG THERAPY
     Dosage: ONLY SINGLE DOSE OF BASILIXIMAB IV (20 MG) AT POST-OPERATIVE D1 AFTER FIRST TRANSPLANTATION
  4. TACROLIMUS. [Suspect]
     Active Substance: TACROLIMUS
     Indication: IMMUNOSUPPRESSANT DRUG THERAPY
     Dosage: GIVEN FROM POD4
     Dates: start: 201707
  5. METHYLPREDNISOLONE. [Suspect]
     Active Substance: METHYLPREDNISOLONE
     Indication: IMMUNOSUPPRESSANT DRUG THERAPY
     Dates: start: 201707

REACTIONS (6)
  - Fungaemia [Recovered/Resolved]
  - Portal vein thrombosis [Recovered/Resolved]
  - Transplant failure [Recovered/Resolved]
  - Hepatic necrosis [Recovered/Resolved]
  - Phaeohyphomycosis [Recovered/Resolved]
  - Hepatic artery thrombosis [Recovered/Resolved]

NARRATIVE: CASE EVENT DATE: 2017
